FAERS Safety Report 20746510 (Version 1)
Quarter: 2022Q2

REPORT INFORMATION
  Report Type: Spontaneous
  Country: US (occurrence: US)
  Receive Date: 20220425
  Receipt Date: 20220425
  Transmission Date: 20220721
  Serious: No
  Sender: FDA-Public Use
  Company Number: US-PFIZER INC-202200229628

PATIENT
  Age: 64 Year
  Sex: Female

DRUGS (8)
  1. IBRANCE [Suspect]
     Active Substance: PALBOCICLIB
     Indication: Breast cancer female
     Dosage: 75 MG, CYCLIC (1 DAILY WITH OR WITHOUT FOOD FOR 21 DAYS ON)
     Route: 048
     Dates: start: 20220120
  2. DIPHENHYDRAMINE HYDROCHLORIDE [Concomitant]
     Active Substance: DIPHENHYDRAMINE HYDROCHLORIDE
     Dosage: 25 MG
  3. GABAPENTIN [Concomitant]
     Active Substance: GABAPENTIN
     Dosage: 300 MG
  4. ISOSORBIDE MONONITRATE [Concomitant]
     Active Substance: ISOSORBIDE MONONITRATE
     Dosage: 30 MG
  5. LETROZOLE [Concomitant]
     Active Substance: LETROZOLE
     Dosage: 2.5 MG
  6. METOPROLOL SUCCINATE [Concomitant]
     Active Substance: METOPROLOL SUCCINATE
     Dosage: 50 MG
  7. MOTRIN IB [Concomitant]
     Active Substance: IBUPROFEN
     Dosage: 200 MG
  8. RESTASIS [Concomitant]
     Active Substance: CYCLOSPORINE
     Dosage: 0.05 %

REACTIONS (4)
  - Fatigue [Not Recovered/Not Resolved]
  - Dyspnoea [Not Recovered/Not Resolved]
  - Cancer pain [Not Recovered/Not Resolved]
  - White blood cell count decreased [Not Recovered/Not Resolved]

NARRATIVE: CASE EVENT DATE: 20220101
